FAERS Safety Report 7451221-5 (Version None)
Quarter: 2011Q2

REPORT INFORMATION
  Report Type: 
  Country: None (occurrence: None)
  Receive Date: 20110429
  Receipt Date: 20110429
  Transmission Date: 20111010
  Serious: Yes (Hospitalization)
  Sender: FDA-Public Use
  Company Number: None

PATIENT
  Sex: Female
  Weight: 74.8435 kg

DRUGS (1)
  1. LOSARTAN POTASSIUM AND HYDROCHLOROTHIAZIDE [Suspect]
     Indication: HYPERTENSION
     Dosage: 100/25 ONCE A DAY ; 100/26 ONCE A DAY
     Dates: start: 20080101, end: 20090101

REACTIONS (10)
  - PARAESTHESIA [None]
  - EXTRASYSTOLES [None]
  - DIARRHOEA [None]
  - HEADACHE [None]
  - INSOMNIA [None]
  - TREMOR [None]
  - OEDEMA MOUTH [None]
  - OEDEMA PERIPHERAL [None]
  - RASH [None]
  - VEIN WALL HYPERTROPHY [None]
